FAERS Safety Report 5514086-4 (Version None)
Quarter: 2007Q4

REPORT INFORMATION
  Report Type: 
  Country: None (occurrence: None)
  Receive Date: 20071113
  Receipt Date: 20071031
  Transmission Date: 20080405
  Serious: Yes (Other)
  Sender: FDA-Public Use
  Company Number: US-AMGEN-US250526

PATIENT
  Sex: Female

DRUGS (9)
  1. ENBREL [Suspect]
     Route: 058
     Dates: start: 20050124, end: 20050830
  2. ARAVA [Suspect]
     Route: 048
     Dates: start: 20041025
  3. PREDNISONE TAB [Concomitant]
     Route: 065
     Dates: start: 20050101
  4. PREVACID [Concomitant]
     Route: 065
     Dates: start: 20020101
  5. ALBUTEROL [Concomitant]
     Route: 065
     Dates: start: 20020101
  6. SINEMET [Concomitant]
     Route: 065
     Dates: start: 20020101
  7. POTASSIUM CHLORIDE [Concomitant]
     Route: 065
  8. XANAX [Concomitant]
     Route: 065
     Dates: start: 20050101
  9. ADVAIR DISKUS 100/50 [Concomitant]
     Route: 065
     Dates: start: 20020101

REACTIONS (1)
  - LUNG NEOPLASM [None]
